FAERS Safety Report 9551540 (Version 1)
Quarter: 2013Q3

REPORT INFORMATION
  Report Type: Spontaneous
  Country: US (occurrence: US)
  Receive Date: 20130925
  Receipt Date: 20130925
  Transmission Date: 20140515
  Serious: No
  Sender: FDA-Public Use
  Company Number: US-BAYER-2013-114409

PATIENT
  Sex: Female
  Weight: 55.33 kg

DRUGS (5)
  1. BETASERON [Suspect]
     Dosage: 0.25 MG, QOD
     Route: 058
  2. VESICARE [SOLIFENACIN] [Concomitant]
     Dosage: 5 MG, UNK
  3. CITALOPRAM [Concomitant]
     Dosage: 10 MG, UNK
  4. CALCIUM +VIT D [Concomitant]
  5. VITAMIN D3 [Concomitant]
     Dosage: 2000 U, UNK

REACTIONS (3)
  - Injection site induration [Unknown]
  - Injection site pain [Unknown]
  - Injection site bruising [Unknown]
